FAERS Safety Report 8374200-2 (Version None)
Quarter: 2012Q2

REPORT INFORMATION
  Report Type: 
  Country: None (occurrence: None)
  Receive Date: 20120521
  Receipt Date: 20120517
  Transmission Date: 20120825
  Serious: Yes (Disabling, Other)
  Sender: FDA-Public Use
  Company Number: US-MERCK-1110USA04119

PATIENT
  Age: 55 Year
  Sex: Female

DRUGS (10)
  1. FOSAMAX [Suspect]
     Route: 048
     Dates: start: 20090101, end: 20100101
  2. FOSAMAX [Suspect]
     Route: 048
     Dates: start: 20010101, end: 20050801
  3. BONIVA [Suspect]
     Indication: OSTEOPOROSIS
     Route: 048
     Dates: start: 20050101, end: 20060101
  4. CHOLECALCIFEROL [Concomitant]
     Indication: OSTEOPOROSIS
     Route: 065
     Dates: start: 19970101
  5. FOSAMAX [Suspect]
     Indication: OSTEOPOROSIS
     Route: 048
     Dates: start: 19970101, end: 20010201
  6. VITAMINS (UNSPECIFIED) [Concomitant]
     Route: 065
     Dates: start: 19700101
  7. FOSAMAX PLUS D [Suspect]
     Route: 048
     Dates: start: 20080101, end: 20090101
  8. HORMONES (UNSPECIFIED) [Concomitant]
     Route: 065
     Dates: start: 19860101, end: 20110101
  9. CALCIUM (UNSPECIFIED) AND VITAMIN D (UNSPECIFIED) [Concomitant]
     Indication: OSTEOPOROSIS
     Route: 065
     Dates: start: 19970101
  10. FOSAMAX PLUS D [Suspect]
     Indication: OSTEOPOROSIS
     Route: 048
     Dates: start: 20060101, end: 20080101

REACTIONS (9)
  - BLOOD CHOLESTEROL INCREASED [None]
  - FEMUR FRACTURE [None]
  - POLYMYALGIA RHEUMATICA [None]
  - LOW TURNOVER OSTEOPATHY [None]
  - ARTHROPATHY [None]
  - TOOTH DISORDER [None]
  - BREAST CANCER STAGE I [None]
  - DEPRESSION [None]
  - HAND FRACTURE [None]
